FAERS Safety Report 18807354 (Version 1)
Quarter: 2021Q1

REPORT INFORMATION
  Report Type: Spontaneous
  Country: US (occurrence: US)
  Receive Date: 20210128
  Receipt Date: 20210128
  Transmission Date: 20210419
  Serious: No
  Sender: FDA-Public Use
  Company Number: None

PATIENT
  Sex: Male

DRUGS (9)
  1. ATORVASTATIN [Concomitant]
     Active Substance: ATORVASTATIN
  2. METOPROL TAR [Concomitant]
  3. ESBRIET [Suspect]
     Active Substance: PIRFENIDONE
     Indication: IDIOPATHIC PULMONARY FIBROSIS
     Dosage: DOSING:  1.  TABLET BY PO TID FOR ONE WEEK?2.   2 TABLETS BY PO TID Y FOR ONE WEEK?3.  3 TABLETS TID,  THER EAFTER . TAKE WITH MEALS?
     Route: 048
     Dates: start: 20170208
  4. GLIPIZIDE. [Concomitant]
     Active Substance: GLIPIZIDE
  5. TYLENOL [Concomitant]
     Active Substance: ACETAMINOPHEN
  6. ASPIRIN. [Concomitant]
     Active Substance: ASPIRIN
  7. PIOGLITAZONE. [Concomitant]
     Active Substance: PIOGLITAZONE
  8. VALSARTAN. [Concomitant]
     Active Substance: VALSARTAN
  9. FUROSEMIDE. [Concomitant]
     Active Substance: FUROSEMIDE

REACTIONS (3)
  - Product dose omission issue [None]
  - Palpitations [None]
  - Unevaluable event [None]
